FAERS Safety Report 12393759 (Version 1)
Quarter: 2016Q2

REPORT INFORMATION
  Report Type: Spontaneous
  Country: US (occurrence: None)
  Receive Date: 20160520
  Receipt Date: 20160520
  Transmission Date: 20160815
  Serious: Yes (Other)
  Sender: FDA-Public Use
  Company Number: None

PATIENT
  Age: 65 Year
  Sex: Male
  Weight: 99.79 kg

DRUGS (2)
  1. ACYCLOVIR 400MG TABS, 400 MG [Suspect]
     Active Substance: ACYCLOVIR
     Indication: ORAL PAIN
     Route: 048
     Dates: start: 20160511, end: 20160516
  2. ACYCLOVIR 400MG TABS, 400 MG [Suspect]
     Active Substance: ACYCLOVIR
     Indication: HERPES SIMPLEX
     Route: 048
     Dates: start: 20160511, end: 20160516

REACTIONS (2)
  - Swelling face [None]
  - Mouth swelling [None]

NARRATIVE: CASE EVENT DATE: 20160515
